FAERS Safety Report 25007107 (Version 7)
Quarter: 2025Q4

REPORT INFORMATION
  Report Type: Report from Study
  Country: CA (occurrence: CA)
  Receive Date: 20250225
  Receipt Date: 20251204
  Transmission Date: 20260119
  Serious: Yes (Death, Disabling, Other)
  Sender: CELLTRION
  Company Number: CA-CELLTRION INC.-2025CA005340

PATIENT

DRUGS (4)
  1. INFLIXIMAB-DYYB [Suspect]
     Active Substance: INFLIXIMAB-DYYB
     Indication: Crohn^s disease
     Dosage: 120 MG EVERY 14 DAYS
     Route: 058
     Dates: start: 20241210
  2. INFLIXIMAB-DYYB [Suspect]
     Active Substance: INFLIXIMAB-DYYB
     Dosage: 240 MG, EOW
  3. INFLIXIMAB-DYYB [Suspect]
     Active Substance: INFLIXIMAB-DYYB
     Dosage: MAINTENANCE - 240 MG - EVERY 2 WEEKS
     Route: 058
     Dates: start: 20250217
  4. INFLIXIMAB-DYYB [Suspect]
     Active Substance: INFLIXIMAB-DYYB
     Dosage: MAINTENANCE - 240 MG - EVERY 2 WEEKS
     Route: 058
     Dates: start: 20250929

REACTIONS (13)
  - Procedural complication [Fatal]
  - Stoma creation [Unknown]
  - Proctalgia [Not Recovered/Not Resolved]
  - Loss of personal independence in daily activities [Unknown]
  - Gait disturbance [Unknown]
  - Haematochezia [Unknown]
  - Abdominal pain [Unknown]
  - Arthralgia [Unknown]
  - Drug effect less than expected [Unknown]
  - Intentional product use issue [Unknown]
  - Dysuria [Unknown]
  - Diarrhoea [Recovered/Resolved]
  - Intentional dose omission [Unknown]

NARRATIVE: CASE EVENT DATE: 20251101
